FAERS Safety Report 6590385-2 (Version None)
Quarter: 2010Q1

REPORT INFORMATION
  Report Type: 
  Country: None (occurrence: None)
  Receive Date: 20100219
  Receipt Date: 20100207
  Transmission Date: 20100710
  Serious: Yes (Hospitalization)
  Sender: FDA-Public Use
  Company Number: JP-AMGEN-US358842

PATIENT
  Sex: Female
  Weight: 48 kg

DRUGS (7)
  1. ENBREL [Suspect]
     Indication: RHEUMATOID ARTHRITIS
     Route: 058
     Dates: start: 20070101, end: 20070701
  2. ENBREL [Suspect]
     Route: 058
     Dates: start: 20070701, end: 20080418
  3. LIVALO [Concomitant]
     Indication: HYPERLIPIDAEMIA
     Route: 048
  4. ARAVA [Concomitant]
     Indication: RHEUMATOID ARTHRITIS
     Route: 048
     Dates: start: 20000101
  5. PARIET [Concomitant]
     Indication: PROPHYLAXIS AGAINST GASTROINTESTINAL ULCER
     Route: 048
  6. CLARITH [Concomitant]
     Indication: INTERSTITIAL LUNG DISEASE
     Route: 048
  7. MUCOSOLVAN [Concomitant]
     Indication: INTERSTITIAL LUNG DISEASE
     Route: 048

REACTIONS (1)
  - SARCOIDOSIS [None]
